FAERS Safety Report 18807534 (Version 1)
Quarter: 2021Q1

REPORT INFORMATION
  Report Type: Spontaneous
  Country: US (occurrence: US)
  Receive Date: 20210129
  Receipt Date: 20210129
  Transmission Date: 20210419
  Serious: No
  Sender: FDA-Public Use
  Company Number: None

PATIENT
  Age: 61 Year
  Sex: Female

DRUGS (21)
  1. LOSARTAN. [Concomitant]
     Active Substance: LOSARTAN
  2. OXYMETAZOLINE [Concomitant]
     Active Substance: OXYMETAZOLINE
  3. ASCORBIC ACID. [Concomitant]
     Active Substance: ASCORBIC ACID
  4. HYDROCHLOROTHIAZIDE. [Concomitant]
     Active Substance: HYDROCHLOROTHIAZIDE
  5. REMDESIVIR. [Suspect]
     Active Substance: REMDESIVIR
     Indication: COVID-19
     Dates: start: 20201029, end: 20201030
  6. CYANOCOBALAMIN. [Concomitant]
     Active Substance: CYANOCOBALAMIN
  7. NPH INSULIN [Concomitant]
     Active Substance: INSULIN BEEF
  8. ASPIRIN. [Concomitant]
     Active Substance: ASPIRIN
  9. METFORMIN [Concomitant]
     Active Substance: METFORMIN HYDROCHLORIDE
  10. OMEGA 3 FATTY ACIDS [Concomitant]
     Active Substance: OMEGA-3 FATTY ACIDS
  11. CALCIUM CARBONATE/VITAMIN D3 [Concomitant]
     Active Substance: CALCIUM CARBONATE\CHOLECALCIFEROL
  12. CICLESONIDE [Concomitant]
     Active Substance: CICLESONIDE
  13. MULTIVITAMIN [Concomitant]
     Active Substance: VITAMINS
  14. AMLODIPINE [Concomitant]
     Active Substance: AMLODIPINE BESYLATE
  15. ATORVASTATIN [Concomitant]
     Active Substance: ATORVASTATIN
  16. CHOLECALCIFEROL [Concomitant]
     Active Substance: CHOLECALCIFEROL
  17. INSULIN LISPRO [Concomitant]
     Active Substance: INSULIN LISPRO
  18. LORATADINE. [Concomitant]
     Active Substance: LORATADINE
  19. ALBUTEROL. [Concomitant]
     Active Substance: ALBUTEROL
  20. FLUTICASONE PROPIONATE. [Concomitant]
     Active Substance: FLUTICASONE PROPIONATE
  21. MOMETASONE/FORMOTEROL [Concomitant]
     Active Substance: FORMOTEROL\MOMETASONE

REACTIONS (4)
  - Hyperglycaemia [None]
  - Bradycardia [None]
  - Respiratory alkalosis [None]
  - Respiratory failure [None]
